FAERS Safety Report 4842397-4 (Version None)
Quarter: 2005Q4

REPORT INFORMATION
  Report Type: 
  Country: None (occurrence: None)
  Receive Date: 20051201
  Receipt Date: 20051121
  Transmission Date: 20060501
  Serious: Yes (Other)
  Sender: FDA-Public Use
  Company Number: FR-BRISTOL-MYERS SQUIBB COMPANY-13193198

PATIENT
  Age: 63 Year
  Sex: Female

DRUGS (3)
  1. TAXOL [Suspect]
     Indication: ENDOMETRIAL CANCER
     Route: 042
     Dates: start: 20051108, end: 20051108
  2. PARAPLATIN [Suspect]
     Indication: ENDOMETRIAL CANCER
     Route: 042
     Dates: start: 20051108, end: 20051108
  3. EFFERALGAN CODEINE [Suspect]
     Route: 048
     Dates: start: 20051106

REACTIONS (2)
  - BACK PAIN [None]
  - CYTOLYTIC HEPATITIS [None]
